FAERS Safety Report 11386917 (Version 8)
Quarter: 2019Q3

REPORT INFORMATION
  Report Type: Spontaneous
  Country: US (occurrence: US)
  Receive Date: 20150817
  Receipt Date: 20190829
  Transmission Date: 20191004
  Serious: No
  Sender: FDA-Public Use
  Company Number: US-PFIZER INC-2015263641

PATIENT
  Age: 75 Year
  Sex: Male
  Weight: 74 kg

DRUGS (7)
  1. BABY ASPIRIN [Concomitant]
     Active Substance: ASPIRIN
     Dosage: UNK
  2. LYRICA [Suspect]
     Active Substance: PREGABALIN
     Dosage: 200 MG, 2X/DAY
     Route: 048
  3. METFORMIN [Concomitant]
     Active Substance: METFORMIN HYDROCHLORIDE
     Dosage: UNK
  4. LYRICA [Suspect]
     Active Substance: PREGABALIN
     Indication: NEURALGIA
     Dosage: 200 MG, 3X/DAY
     Route: 048
  5. DICYCLOMINE [Concomitant]
     Active Substance: DICYCLOMINE HYDROCHLORIDE
     Dosage: UNK
  6. SINGULAIR [Concomitant]
     Active Substance: MONTELUKAST SODIUM
     Dosage: UNK
  7. POTASSIUM [Concomitant]
     Active Substance: POTASSIUM
     Dosage: UNK

REACTIONS (14)
  - Withdrawal syndrome [Unknown]
  - Nervousness [Recovered/Resolved]
  - Memory impairment [Unknown]
  - Infection [Unknown]
  - Incoherent [Not Recovered/Not Resolved]
  - Restlessness [Recovered/Resolved]
  - Tremor [Recovered/Resolved]
  - Pancreatic cyst [Not Recovered/Not Resolved]
  - Disturbance in attention [Unknown]
  - Post procedural complication [Unknown]
  - Feeling jittery [Recovered/Resolved]
  - Impatience [Not Recovered/Not Resolved]
  - Therapeutic product effect incomplete [Unknown]
  - Intentional product misuse [Unknown]

NARRATIVE: CASE EVENT DATE: 2015
